FAERS Safety Report 8464329-2 (Version None)
Quarter: 2012Q2

REPORT INFORMATION
  Report Type: 
  Country: None (occurrence: None)
  Receive Date: 20120625
  Receipt Date: 20120612
  Transmission Date: 20120825
  Serious: Yes (Hospitalization)
  Sender: FDA-Public Use
  Company Number: NL-MYLANLABS-2012S1012160

PATIENT
  Age: 5 Decade
  Sex: Male

DRUGS (5)
  1. TRAMADOL HCL [Suspect]
     Indication: COMPLEX REGIONAL PAIN SYNDROME
     Dosage: HIGH DOSE
     Route: 065
  2. GABAPENTIN [Concomitant]
     Indication: COMPLEX REGIONAL PAIN SYNDROME
     Dosage: ^GIVEN IN THE HIGHEST DOSES^
     Route: 065
  3. PREGABALIN [Concomitant]
     Indication: COMPLEX REGIONAL PAIN SYNDROME
     Dosage: ^GIVEN IN THE HIGHEST DOSES^
     Route: 065
  4. NSAID'S [Concomitant]
  5. AMITRIPTYLINE HCL [Concomitant]
     Indication: COMPLEX REGIONAL PAIN SYNDROME
     Dosage: 25MG ORALLY
     Route: 048

REACTIONS (1)
  - ILEUS [None]
